FAERS Safety Report 16868125 (Version 2)
Quarter: 2019Q4

REPORT INFORMATION
  Report Type: Spontaneous
  Country: US (occurrence: US)
  Receive Date: 20190930
  Receipt Date: 20191002
  Transmission Date: 20200122
  Serious: Yes (Other)
  Sender: FDA-Public Use
  Company Number: US-PFIZER INC-2019417116

PATIENT
  Age: 44 Year
  Sex: Female
  Weight: 60.33 kg

DRUGS (3)
  1. RELPAX [Suspect]
     Active Substance: ELETRIPTAN HYDROBROMIDE
     Indication: MIGRAINE
     Dosage: 40 MG, AS NEEDED (ONE TABLET AS NEEDED)
  2. AJOVY [Concomitant]
     Active Substance: FREMANEZUMAB-VFRM
     Indication: MIGRAINE
     Dosage: 14 MG, MONTHLY(14 MG ONCE A MONTH INJECTION. NOT POSITIVE ABOUT THAT.)
  3. AUBAGIO [Concomitant]
     Active Substance: TERIFLUNOMIDE
     Indication: MULTIPLE SCLEROSIS
     Dosage: 14 MG, 1X/DAY
     Route: 048

REACTIONS (4)
  - Burning sensation [Unknown]
  - Autoimmune disorder [Unknown]
  - Pruritus [Not Recovered/Not Resolved]
  - Insomnia [Unknown]

NARRATIVE: CASE EVENT DATE: 20190924
